FAERS Safety Report 24783988 (Version 2)
Quarter: 2025Q1

REPORT INFORMATION
  Report Type: Report from Study
  Country: CA (occurrence: CA)
  Receive Date: 20241227
  Receipt Date: 20250219
  Transmission Date: 20250409
  Serious: Yes (Other)
  Sender: TAKEDA
  Company Number: CA-TAKEDA-2020TUS025290

PATIENT
  Sex: Female

DRUGS (12)
  1. VEDOLIZUMAB [Suspect]
     Active Substance: VEDOLIZUMAB
     Indication: Colitis ulcerative
  2. VEDOLIZUMAB [Suspect]
     Active Substance: VEDOLIZUMAB
  3. VEDOLIZUMAB [Suspect]
     Active Substance: VEDOLIZUMAB
     Dosage: 300 MILLIGRAM, Q4WEEKS
     Dates: start: 20220418
  4. VEDOLIZUMAB [Suspect]
     Active Substance: VEDOLIZUMAB
  5. VEDOLIZUMAB [Suspect]
     Active Substance: VEDOLIZUMAB
  6. VEDOLIZUMAB [Suspect]
     Active Substance: VEDOLIZUMAB
  7. MESALAMINE [Concomitant]
     Active Substance: MESALAMINE
  8. ENTOCORT [Concomitant]
     Active Substance: BUDESONIDE
  9. PENTASA [Concomitant]
     Active Substance: MESALAMINE
  10. Salofalk [Concomitant]
  11. CIPROLAX [Concomitant]
  12. HYDROXYUREA [Concomitant]
     Active Substance: HYDROXYUREA

REACTIONS (8)
  - Colitis ulcerative [Unknown]
  - Illness [Unknown]
  - Abdominal discomfort [Unknown]
  - Off label use [Unknown]
  - Diarrhoea [Unknown]
  - Mucous stools [Unknown]
  - Constipation [Unknown]
  - Nausea [Unknown]

NARRATIVE: CASE EVENT DATE: 20200101
